FAERS Safety Report 7688646 (Version 2)
Quarter: 2015Q4

REPORT INFORMATION
  Report Type: Spontaneous
  Country: US (occurrence: US)
  Receive Date: 20101201
  Receipt Date: 20151007
  Transmission Date: 20160305
  Serious: Yes (Disabling, Other)
  Sender: FDA-Public Use
  Company Number: US-ROCHE-722685

PATIENT
  Age: 49 Year
  Sex: Male

DRUGS (10)
  1. ACCUTANE [Suspect]
     Active Substance: ISOTRETINOIN
     Dosage: 40 MG BID FOR 5 MONTHS IN 1/04. THEN 20 MG BID IN FEB APR AND JUN
     Route: 065
     Dates: start: 200303, end: 20040716
  2. ACCUTANE [Suspect]
     Active Substance: ISOTRETINOIN
     Indication: HIDRADENITIS
     Route: 065
     Dates: start: 199009, end: 199105
  3. ACCUTANE [Suspect]
     Active Substance: ISOTRETINOIN
     Route: 065
     Dates: start: 200005, end: 200012
  4. INSULIN [Concomitant]
     Active Substance: INSULIN NOS
  5. KEFLEX [Concomitant]
     Active Substance: CEPHALEXIN
     Route: 065
  6. DEPAKOTE [Concomitant]
     Active Substance: DIVALPROEX SODIUM
  7. TRAMADOL. [Concomitant]
     Active Substance: TRAMADOL
  8. KENALOG [Concomitant]
     Active Substance: TRIAMCINOLONE ACETONIDE
     Dosage: IL.
     Route: 065
  9. DICLOX [Concomitant]
     Route: 065
  10. CLINDAMYCIN [Concomitant]
     Active Substance: CLINDAMYCIN\CLINDAMYCIN PHOSPHATE
     Route: 065

REACTIONS (12)
  - Lip dry [Unknown]
  - Blood triglycerides increased [Unknown]
  - Inflammatory bowel disease [Unknown]
  - Polyp [Unknown]
  - Haemorrhoids [Unknown]
  - Dry eye [Unknown]
  - Mucosal dryness [Unknown]
  - Gastrointestinal injury [Unknown]
  - Osteoarthritis [Unknown]
  - Depression [Unknown]
  - Colitis ulcerative [Unknown]
  - Nasal dryness [Unknown]

NARRATIVE: CASE EVENT DATE: 1995
